FAERS Safety Report 8269884-3 (Version None)
Quarter: 2012Q2

REPORT INFORMATION
  Report Type: 
  Country: None (occurrence: None)
  Receive Date: 20120410
  Receipt Date: 20120403
  Transmission Date: 20120825
  Serious: No
  Sender: FDA-Public Use
  Company Number: US-PFIZER INC-2012021943

PATIENT
  Sex: Female
  Weight: 68.9 kg

DRUGS (35)
  1. GARAMYCIN [Concomitant]
     Dosage: AT BEDTIME
  2. LASIX [Concomitant]
     Indication: OEDEMA PERIPHERAL
     Dosage: 40 MG, DAILY
     Route: 048
  3. ZYRTEC [Concomitant]
     Indication: HYPERSENSITIVITY
     Dosage: 10 MG, DAILY
     Route: 048
  4. CLINDAMYCIN PHOSPHATE [Concomitant]
     Dosage: 1 %, 2X/DAY
     Route: 061
  5. COLACE [Concomitant]
     Dosage: 100 MG, 3 CAPSULE AT HS
     Route: 048
  6. CALCIUM [Concomitant]
     Dosage: 600 MG, 2X/DAY
  7. HYTONE [Concomitant]
     Dosage: 2.5 %, 3X/DAY AS NEEDED
     Route: 061
  8. SINEMET [Concomitant]
     Dosage: 25-100MG, TAKE 1.5 TABLETS
     Route: 048
  9. GARAMYCIN [Concomitant]
     Dosage: 0.1 %, AT BEDTIME TO HEELS
     Route: 061
  10. LODOSYN [Concomitant]
     Dosage: 25 MG, 3X/DAY, ONE TAB
     Route: 048
  11. ASCORBIC ACID [Concomitant]
     Dosage: 1000 MG, 1X/DAY
     Route: 048
  12. TYLENOL (CAPLET) [Concomitant]
     Indication: PAIN
     Dosage: 500 MG, 1-2 TABLETS EVERY 6 HOURS AS NEEDED
     Route: 048
  13. GLUCOSAMINE W/CHONDROITIN SULFATES [Concomitant]
     Dosage: 1 DF, 3X/DAY
  14. MULTI-VITAMINS [Concomitant]
     Dosage: UNK
     Route: 048
  15. PROPYLENE GLYCOL [Concomitant]
     Dosage: 0.3-0.4% UNK; PLACE IN AFFECTED EYE
  16. LAMISIL [Concomitant]
     Dosage: 1 %, 2X/DAY; AS NEEDED
     Route: 061
  17. CARBIDOPA + LEVODOPA [Suspect]
     Indication: TREMOR
     Dosage: 25-100 MG 3X/DAY
     Route: 048
  18. NEURONTIN [Concomitant]
     Indication: SCOLIOSIS
     Dosage: 300 MG, 3X/DAY
  19. CELEBREX [Concomitant]
     Indication: BONE DISORDER
     Dosage: 200 MG, DAILY
  20. VITAMIN E [Concomitant]
     Dosage: 400 UNITS DAILY
     Route: 048
  21. LACTOBACILLUS ACIDOPHILUS [Concomitant]
     Dosage: UNK
  22. CULTURELLE [Concomitant]
     Dosage: 10 B CELL 1 CAP DAILY
  23. PREMARIN [Suspect]
     Indication: ATROPHIC VULVOVAGINITIS
     Dosage: UNK, 2X/WEEK, 1 GRAM
     Route: 067
  24. LUTEIN [Concomitant]
     Dosage: 10 MG, 1X/DAY
     Route: 048
  25. CALCIUM WITH VITAMIN D [Concomitant]
     Dosage: 600-200 MG-UNIT 2 DAILY
  26. PREMARIN [Suspect]
     Indication: MEDICAL DEVICE IMPLANTATION
     Dosage: 1 G, 2X/WEEK @ BEDTIME
     Route: 067
  27. CARBIDOPA + LEVODOPA [Suspect]
     Indication: BRAIN NEOPLASM
  28. NEXIUM [Concomitant]
     Indication: GASTRIC DISORDER
     Dosage: 40 MG, 2X/DAY
     Route: 048
  29. MYCOLOG [Concomitant]
     Dosage: 100000-0.1 UNIT/GM-% TWICE DAILY AS NEEDED
     Route: 061
  30. COMBIVENT [Concomitant]
     Dosage: 18-103MCG- 2 PUFF EVERY 6 HOURS
  31. NEURONTIN [Concomitant]
     Dosage: 300 MG, 3X/DAY,  1IN AM , 1 IN PM, 2 AT NIGHT
     Route: 048
  32. VICKS VAPOSTEAM LIQUID MEDICATION [Concomitant]
     Dosage: TO NOSTRILS DAILY
  33. PREMARIN [Suspect]
     Indication: BLADDER PROLAPSE
     Dosage: 2 G, 2X/WEEK
     Route: 067
  34. PREMARIN [Suspect]
     Dosage: UNK
  35. VITAMIN D [Concomitant]
     Dosage: 1000 IU, 1X/DAY

REACTIONS (2)
  - ABDOMINAL DISCOMFORT [None]
  - INCORRECT DOSE ADMINISTERED [None]
